FAERS Safety Report 13055315 (Version 1)
Quarter: 2016Q4

REPORT INFORMATION
  Report Type: Spontaneous
  Country: US (occurrence: US)
  Receive Date: 20161222
  Receipt Date: 20161222
  Transmission Date: 20170207
  Serious: No
  Sender: FDA-Public Use
  Company Number: US-GLAXOSMITHKLINE-US2016184677

PATIENT
  Age: 81 Year
  Sex: Male

DRUGS (1)
  1. NICORETTE [Suspect]
     Active Substance: NICOTINE
     Indication: SMOKING CESSATION THERAPY
     Dosage: 4 MG, UNK, TOOK 1/2 A PILL

REACTIONS (7)
  - Dysphonia [Not Recovered/Not Resolved]
  - Product lot number issue [None]
  - Product expiration date issue [None]
  - Wrong technique in product usage process [Unknown]
  - Medication error [Unknown]
  - Product quality issue [Unknown]
  - Throat irritation [Recovered/Resolved]
